FAERS Safety Report 6057129-4 (Version None)
Quarter: 2009Q1

REPORT INFORMATION
  Report Type: 
  Country: None (occurrence: None)
  Receive Date: 20090126
  Receipt Date: 20090126
  Transmission Date: 20090719
  Serious: Yes (Disabling, Other)
  Sender: FDA-Public Use
  Company Number: None

PATIENT
  Age: 32 Year
  Sex: Female
  Weight: 72.5755 kg

DRUGS (4)
  1. CYMBALTA [Suspect]
     Indication: ARTHRALGIA
     Dates: start: 20081001, end: 20081228
  2. CYMBALTA [Suspect]
     Indication: DEPRESSION
     Dates: start: 20081001, end: 20081228
  3. CYMBALTA [Suspect]
     Indication: MYALGIA
     Dates: start: 20081001, end: 20081228
  4. CYMBALTA [Suspect]
     Indication: SYSTEMIC LUPUS ERYTHEMATOSUS
     Dates: start: 20081001, end: 20081228

REACTIONS (13)
  - CRYING [None]
  - DEPRESSION [None]
  - DIZZINESS [None]
  - DRUG WITHDRAWAL SYNDROME [None]
  - INFLUENZA [None]
  - INSOMNIA [None]
  - LETHARGY [None]
  - MIGRAINE [None]
  - MOOD ALTERED [None]
  - NAUSEA [None]
  - NIGHT SWEATS [None]
  - PARAESTHESIA [None]
  - WEIGHT INCREASED [None]
